FAERS Safety Report 8389720-4 (Version None)
Quarter: 2012Q1

REPORT INFORMATION
  Report Type: 
  Country: None (occurrence: None)
  Receive Date: 20120323
  Receipt Date: 20110503
  Transmission Date: 20120608
  Serious: Yes (Other)
  Sender: FDA-Public Use
  Company Number: 163-21880-11032283

PATIENT
  Age: 73 Year
  Sex: Female

DRUGS (5)
  1. LEVOTHYROXINE SODIUM (LEVOTHYROXINE SODIUM) (UNKNOWN) [Concomitant]
  2. REVLIMID [Suspect]
     Indication: MULTIPLE MYELOMA
     Dosage: 25 MG, DAILY FOR 21 DAYS, PO
     Route: 048
     Dates: start: 20110114, end: 20110203
  3. CLONIDINE HCL (CLONIDINE HYDROCHLORIDE) (POULTICE OR PATCH) [Concomitant]
  4. AMLODIPINE BESYLATE (AMLODIPINE BESILATE) (UNKNOWN) [Concomitant]
  5. DEXAMETHASONE [Concomitant]

REACTIONS (1)
  - HEPATIC ENZYME INCREASED [None]
